FAERS Safety Report 11531157 (Version 1)
Quarter: 2015Q3

REPORT INFORMATION
  Report Type: Spontaneous
  Country: US (occurrence: US)
  Receive Date: 20150903
  Receipt Date: 20150903
  Transmission Date: 20151125
  Serious: No
  Sender: FDA-Public Use
  Company Number: US-ELI_LILLY_AND_COMPANY-US201306005570

PATIENT
  Sex: Female

DRUGS (1)
  1. CYMBALTA [Suspect]
     Active Substance: DULOXETINE HYDROCHLORIDE
     Indication: DEPRESSION
     Dosage: 60 MG, BID
     Route: 065
     Dates: start: 2008, end: 201301

REACTIONS (7)
  - Crying [Unknown]
  - Tremor [Unknown]
  - Drug ineffective [Unknown]
  - Dyskinesia [Unknown]
  - Drug withdrawal syndrome [Unknown]
  - Chills [Unknown]
  - Paraesthesia [Unknown]

NARRATIVE: CASE EVENT DATE: 201301
